FAERS Safety Report 18637541 (Version 3)
Quarter: 2021Q1

REPORT INFORMATION
  Report Type: Report from Study
  Country: US (occurrence: US)
  Receive Date: 20201218
  Receipt Date: 20210217
  Transmission Date: 20210419
  Serious: Yes (Death, Life-Threatening, Hospitalization, Other)
  Sender: FDA-Public Use
  Company Number: NVSC2020US292832

PATIENT
  Age: 79 Year
  Sex: Male

DRUGS (3)
  1. KYMRIAH [Suspect]
     Active Substance: TISAGENLECLEUCEL
     Indication: DIFFUSE LARGE B-CELL LYMPHOMA
     Dosage: UNK UNK, ONCE/SINGLE (3.8E8 CAR?POSITIVE VIABLE T CELLS)
     Route: 065
     Dates: start: 20200407
  2. FLUDARABINE [Concomitant]
     Active Substance: FLUDARABINE PHOSPHATE
     Indication: CHEMOTHERAPY
     Dosage: UNK
     Route: 065
  3. CYCLOPHOSPHAMIDE. [Concomitant]
     Active Substance: CYCLOPHOSPHAMIDE
     Indication: CHEMOTHERAPY
     Dosage: UNK
     Route: 065

REACTIONS (15)
  - Fatigue [Unknown]
  - Pyrexia [Unknown]
  - COVID-19 [Fatal]
  - SARS-CoV-2 test positive [Unknown]
  - Hypogammaglobulinaemia [Unknown]
  - Platelet count decreased [Unknown]
  - Neutrophil count decreased [Unknown]
  - Diffuse large B-cell lymphoma recurrent [Unknown]
  - Cytokine release syndrome [Recovered/Resolved]
  - Fungal infection [Unknown]
  - Confusional state [Unknown]
  - Haemoglobin decreased [Unknown]
  - Inflammatory marker increased [Unknown]
  - Lymphocyte count decreased [Unknown]
  - Viral infection [Unknown]
